FAERS Safety Report 7086280-5 (Version None)
Quarter: 2010Q4

REPORT INFORMATION
  Report Type: 
  Country: None (occurrence: None)
  Receive Date: 20101105
  Receipt Date: 20101030
  Transmission Date: 20110411
  Serious: Yes (Hospitalization)
  Sender: FDA-Public Use
  Company Number: US-BAYER-201022901BCC

PATIENT
  Age: 18 Year
  Sex: Female
  Weight: 59 kg

DRUGS (4)
  1. ALEVE (CAPLET) [Suspect]
     Indication: BACK PAIN
     Dosage: UNIT DOSE: 220 MG
     Route: 048
     Dates: start: 20101029
  2. AMOXICILLIN [Concomitant]
  3. LEXAPRO [Concomitant]
  4. BIRTH CONTROL PILLS [Concomitant]

REACTIONS (5)
  - CHILLS [None]
  - FEELING HOT [None]
  - KIDNEY INFECTION [None]
  - TREMOR [None]
  - VOMITING [None]
